FAERS Safety Report 9841345 (Version 9)
Quarter: 2015Q3

REPORT INFORMATION
  Report Type: Report from Study
  Country: US (occurrence: US)
  Receive Date: 20140124
  Receipt Date: 20150807
  Transmission Date: 20151125
  Serious: Yes (Other)
  Sender: FDA-Public Use
  Company Number: US-ALEXION PHARMACEUTICALS INC.-A201400166

PATIENT

DRUGS (1)
  1. SOLIRIS [Suspect]
     Active Substance: ECULIZUMAB
     Indication: HAEMOLYTIC URAEMIC SYNDROME
     Dosage: 1200 MG, Q2W
     Route: 042
     Dates: start: 20130909

REACTIONS (16)
  - Abdominal discomfort [Not Recovered/Not Resolved]
  - Urinary incontinence [Not Recovered/Not Resolved]
  - Influenza [Not Recovered/Not Resolved]
  - Bronchitis [Not Recovered/Not Resolved]
  - Breast abscess [Not Recovered/Not Resolved]
  - Faecal incontinence [Not Recovered/Not Resolved]
  - Fatigue [Unknown]
  - Fatigue [Not Recovered/Not Resolved]
  - Hepatic mass [Not Recovered/Not Resolved]
  - Alopecia [Not Recovered/Not Resolved]
  - Abscess [Recovered/Resolved]
  - Malaise [Unknown]
  - Haematuria [Unknown]
  - Abscess [Not Recovered/Not Resolved]
  - Gastrointestinal haemorrhage [Unknown]
  - Bronchitis [Not Recovered/Not Resolved]

NARRATIVE: CASE EVENT DATE: 20140103
